FAERS Safety Report 24632313 (Version 3)
Quarter: 2025Q1

REPORT INFORMATION
  Report Type: Spontaneous
  Country: CA (occurrence: CA)
  Receive Date: 20241118
  Receipt Date: 20250325
  Transmission Date: 20250408
  Serious: Yes (Other)
  Sender: SANOFI AVENTIS
  Company Number: CA-SA-2024SA325208

PATIENT
  Age: 40 Year
  Sex: Female
  Weight: 86 kg

DRUGS (26)
  1. ADMELOG [Suspect]
     Active Substance: INSULIN LISPRO
     Indication: Gestational diabetes
     Route: 058
  2. ADMELOG [Suspect]
     Active Substance: INSULIN LISPRO
     Indication: Type 2 diabetes mellitus
  3. INSULIN GLARGINE [Suspect]
     Active Substance: INSULIN GLARGINE
     Indication: Gestational diabetes
     Dosage: 54 U, QD
     Route: 058
  4. INSULIN GLARGINE [Suspect]
     Active Substance: INSULIN GLARGINE
     Indication: Type 2 diabetes mellitus
  5. BASAGLAR KWIKPEN [Suspect]
     Active Substance: INSULIN GLARGINE
     Indication: Type 2 diabetes mellitus
     Dosage: 54 IU, QD
     Route: 058
  6. BASAGLAR KWIKPEN [Suspect]
     Active Substance: INSULIN GLARGINE
     Indication: Gestational diabetes
  7. ARISTOCORT [TRIAMCINOLONE] [Concomitant]
  8. ASPIRIN [Concomitant]
     Active Substance: ASPIRIN
  9. ATROVENT [Concomitant]
     Active Substance: IPRATROPIUM BROMIDE
  10. BAQSIMI [Concomitant]
     Active Substance: GLUCAGON
     Indication: Blood glucose increased
     Route: 045
  11. BISOPROLOL [Concomitant]
     Active Substance: BISOPROLOL
     Dosage: 5 MG, QD
  12. CIMZIA [Concomitant]
     Active Substance: CERTOLIZUMAB PEGOL
     Dosage: UNK, QOW
     Route: 058
  13. DICLECTIN [Concomitant]
     Active Substance: DOXYLAMINE SUCCINATE\PYRIDOXINE HYDROCHLORIDE
     Dosage: 1-2DF, QID
  14. ENDOMETRIN [Concomitant]
     Active Substance: PROGESTERONE
     Dosage: 200 MG, BID
     Route: 067
  15. HUMALOG [Concomitant]
     Active Substance: INSULIN LISPRO
     Route: 030
  16. INOSITOL [Concomitant]
     Active Substance: INOSITOL
  17. LIDEMOL [Concomitant]
  18. RIZATRIPTAN BENZOATE [Concomitant]
     Active Substance: RIZATRIPTAN BENZOATE
  19. METOPROLOL [Concomitant]
     Active Substance: METOPROLOL
  20. PROTOPIC [Concomitant]
     Active Substance: TACROLIMUS
     Route: 061
  21. SYNTHROID [Concomitant]
     Active Substance: LEVOTHYROXINE SODIUM
     Dosage: 1 DF, QD
  22. TYLENOL EXTRA STRENGTH [Concomitant]
     Active Substance: ACETAMINOPHEN
  23. VENTOLIN HFA [Concomitant]
     Active Substance: ALBUTEROL SULFATE
     Dosage: UNK, QID
  24. BUDESONIDE [Concomitant]
     Active Substance: BUDESONIDE
  25. LOSEC [Concomitant]
     Active Substance: OMEPRAZOLE
     Dosage: 20 MG, QD
  26. LOPRESSOR [Concomitant]
     Active Substance: METOPROLOL TARTRATE

REACTIONS (3)
  - Adverse drug reaction [Recovering/Resolving]
  - Injection site urticaria [Recovering/Resolving]
  - Product substitution issue [Unknown]
